FAERS Safety Report 8770645 (Version 1)
Quarter: 2012Q4

REPORT INFORMATION
  Report Type: 
  Country: US (occurrence: US)
  Receive Date: 20120907
  Receipt Date: 20120907
  Transmission Date: 20130627
  Serious: Yes (Other)
  Sender: FDA-Public Use
  Company Number: US-UCBSA-064903

PATIENT
  Age: 37 Year
  Sex: Female

DRUGS (4)
  1. CIMZIA [Suspect]
     Indication: RHEUMATOID ARTHRITIS
     Dates: start: 201001
  2. FOLIC ACID [Concomitant]
     Dosage: 1 MG DAILY
  3. METHOTREXATE [Concomitant]
  4. CELEBREX [Concomitant]
     Dosage: 200 MG DAILY

REACTIONS (1)
  - Neuroendocrine tumour [Unknown]
